FAERS Safety Report 25953513 (Version 1)
Quarter: 2025Q4

REPORT INFORMATION
  Report Type: Spontaneous
  Country: EU (occurrence: EU)
  Receive Date: 20251023
  Receipt Date: 20251023
  Transmission Date: 20260118
  Serious: Yes (Death, Other)
  Sender: BRACCO
  Company Number: None

PATIENT
  Age: 70 Year
  Sex: Male

DRUGS (7)
  1. IOMERON [Suspect]
     Active Substance: IOMEPROL
     Indication: Computerised tomogram
     Dosage: 100 ML, SINGLE
     Route: 042
     Dates: start: 20250929, end: 20250929
  2. ANORO ELLIPTA [Concomitant]
     Active Substance: UMECLIDINIUM BROMIDE\VILANTEROL TRIFENATATE
     Dosage: CONTINUOUS BRONCHODILATOR; 1 PUFF IN THE MORNING
  3. ATORVASTATIN [Concomitant]
     Active Substance: ATORVASTATIN
     Dosage: 80 MG, QD; 1 TABLET IN THE EVENING
  4. ECONAZOLE [Concomitant]
     Active Substance: ECONAZOLE
     Dosage: 1%, 1 APPLICATION MORNING AND EVENING ON THE CHEST FOR 4 WEEKS
  5. KARDEGIC [Concomitant]
     Active Substance: ASPIRIN DL-LYSINE
     Dosage: 75 MG 1 SACHET AT NOON
  6. Perindopril/Amlodipine HCS [Concomitant]
     Dosage: PERINDOPRIL 5 MG / AMLODIPINE 5 MG TABLET; 1 TABLET IN THE MORNING
  7. ALBUTEROL [Concomitant]
     Active Substance: ALBUTEROL
     Indication: Dyspnoea
     Dosage: 100 ?G; 2 PUFFS IF DIFFICULTY BREATHING

REACTIONS (2)
  - Cardio-respiratory arrest [Fatal]
  - Anaphylactic shock [Fatal]

NARRATIVE: CASE EVENT DATE: 20250929
